FAERS Safety Report 6577920-5 (Version None)
Quarter: 2010Q1

REPORT INFORMATION
  Report Type: 
  Country: None (occurrence: None)
  Receive Date: 20100211
  Receipt Date: 20100204
  Transmission Date: 20100710
  Serious: Yes (Death, Life-Threatening, Hospitalization)
  Sender: FDA-Public Use
  Company Number: US-EISAI INC.-E2080-00224-SPO-US

PATIENT
  Age: 18 Year
  Sex: Male

DRUGS (18)
  1. BANZEL [Suspect]
     Indication: LENNOX-GASTAUT SYNDROME
     Dates: start: 20090528, end: 20091105
  2. BANZEL [Suspect]
     Indication: EPILEPSY
  3. PRILOSEC [Concomitant]
  4. KEPPRA [Concomitant]
     Indication: EPILEPSY
     Dates: end: 20091101
  5. KEPPRA [Concomitant]
     Dates: start: 20091101
  6. CORN STARCH [Concomitant]
  7. BICARBONATE [Concomitant]
     Indication: ACIDOSIS
     Dosage: 3 AMPS
     Dates: start: 20091108
  8. VANCOMYCIN [Concomitant]
     Indication: SEPSIS
     Route: 042
     Dates: start: 20091108, end: 20091108
  9. VANCOMYCIN [Concomitant]
  10. ONDANSETRON [Concomitant]
     Indication: NAUSEA
     Route: 042
     Dates: start: 20091108
  11. COMPAZINE [Concomitant]
     Indication: NAUSEA
     Dosage: 2.5 TO 5 MG
     Route: 042
     Dates: start: 20091108
  12. ZOSYN [Concomitant]
     Indication: SEPSIS
     Route: 042
     Dates: start: 20091108
  13. MORPHINE [Concomitant]
     Dosage: 1 TO 3 MG
     Route: 042
     Dates: start: 20091108
  14. MORPHINE [Concomitant]
     Indication: RESPIRATORY DISTRESS
  15. NEXIUM [Concomitant]
     Route: 042
     Dates: start: 20091108
  16. LORAZEPAM [Concomitant]
  17. OXYGEN [Concomitant]
     Indication: HYPOXIA
     Dosage: 4 TO 6 L
     Dates: start: 20091101
  18. BISACODYL [Concomitant]
     Route: 054

REACTIONS (6)
  - DECREASED APPETITE [None]
  - LACTIC ACIDOSIS [None]
  - METABOLIC ACIDOSIS [None]
  - NAUSEA [None]
  - RENAL FAILURE ACUTE [None]
  - VOMITING [None]
